FAERS Safety Report 5858504-0 (Version None)
Quarter: 2008Q3

REPORT INFORMATION
  Report Type: 
  Country: None (occurrence: None)
  Receive Date: 20080822
  Receipt Date: 20051107
  Transmission Date: 20090109
  Serious: Yes (Life-Threatening, Other)
  Sender: FDA-Public Use
  Company Number: 2004JP001500

PATIENT
  Age: 14 Year
  Sex: Female
  Weight: 40 kg

DRUGS (4)
  1. PROGRAF [Suspect]
     Indication: LIVER TRANSPLANT
     Dosage: 1 MG, BID, ORAL
     Route: 048
     Dates: start: 20030825, end: 20030831
  2. NEOPHYLLIN (AMINOPHYLLINE) PER ORAL NOS [Suspect]
     Indication: ASTHMA
     Dosage: ORAL
     Route: 048
     Dates: end: 20030831
  3. METHYLPREDNISOLONE [Concomitant]
  4. BASILIXIMAB (BASILIXIMAB) INJECTION [Concomitant]

REACTIONS (11)
  - ALANINE AMINOTRANSFERASE INCREASED [None]
  - ASPARTATE AMINOTRANSFERASE INCREASED [None]
  - GRAFT COMPLICATION [None]
  - GRAND MAL CONVULSION [None]
  - HEPATIC HAEMATOMA [None]
  - HEPATIC HAEMORRHAGE [None]
  - HEPATIC RUPTURE [None]
  - LACERATION [None]
  - LEUKOENCEPHALOPATHY [None]
  - PNEUMONIA STAPHYLOCOCCAL [None]
  - RESPIRATORY FAILURE [None]
